FAERS Safety Report 18915349 (Version 2)
Quarter: 2021Q2

REPORT INFORMATION
  Report Type: Report from Study
  Country: US (occurrence: US)
  Receive Date: 20210219
  Receipt Date: 20210625
  Transmission Date: 20210717
  Serious: Yes (Hospitalization)
  Sender: FDA-Public Use
  Company Number: PHHO2017US007918

PATIENT
  Age: 14 Year
  Sex: Male
  Weight: 78.5 kg

DRUGS (8)
  1. THIOGUANINE [Suspect]
     Active Substance: THIOGUANINE
     Indication: CHEMOTHERAPY
     Dosage: 120 MG PO DAYS 29?42
     Route: 048
     Dates: start: 20170411, end: 20170424
  2. VINCRISTINE [Concomitant]
     Active Substance: VINCRISTINE
     Indication: CHEMOTHERAPY
     Dosage: 2 MG, ONCE
     Route: 042
     Dates: start: 20161118
  3. INC424A [Suspect]
     Active Substance: RUXOLITINIB
     Dosage: 55 MG, BID
     Route: 048
     Dates: start: 20170516
  4. CYCLOPHOSPHAMIDE. [Suspect]
     Active Substance: CYCLOPHOSPHAMIDE
     Indication: CHEMOTHERAPY
     Dosage: 1880 MG, DAY 29
     Route: 042
     Dates: start: 20161007, end: 20170411
  5. INC424A [Suspect]
     Active Substance: RUXOLITINIB
     Indication: ACUTE LYMPHOCYTIC LEUKAEMIA
     Dosage: 55 MG, BID
     Route: 048
     Dates: start: 20161007, end: 20170510
  6. CYTARABINE. [Suspect]
     Active Substance: CYTARABINE
     Indication: CHEMOTHERAPY
     Dosage: 141 MG, DAY 29?32 ; DAY 36?39
     Route: 042
     Dates: start: 20161007, end: 20170421
  7. METHOTREXATE. [Suspect]
     Active Substance: METHOTREXATE
     Indication: CHEMOTHERAPY
     Dosage: 15 MG, DAY 29
     Route: 037
     Dates: start: 20161007, end: 20170411
  8. PEGASPARGASE [Concomitant]
     Active Substance: PEGASPARGASE
     Indication: CHEMOTHERAPY
     Dosage: 4,725 ONCE
     Route: 042
     Dates: start: 20161021

REACTIONS (1)
  - Febrile neutropenia [Recovered/Resolved]

NARRATIVE: CASE EVENT DATE: 20170430
